FAERS Safety Report 10378116 (Version 1)
Quarter: 2014Q1

REPORT INFORMATION
  Report Type: Spontaneous
  Country: US (occurrence: None)
  Receive Date: 20140306
  Receipt Date: 20140306
  Transmission Date: 20141002
  Serious: Yes (Other)
  Sender: FDA-Public Use
  Company Number: 163-21880-13013696

PATIENT
  Age: 69 Year
  Sex: Male

DRUGS (9)
  1. REVLIMID (LENALIDOMIDE) (CAPSULES) [Suspect]
     Indication: MYELODYSPLASTIC SYNDROME
     Route: 048
     Dates: start: 20110112
  2. ARANESP (DARBEPOETIN ALFA) [Concomitant]
  3. ASA (ACETYLSALICYLIC ACID) [Concomitant]
  4. COREG (CARVEDILOL) [Concomitant]
  5. EXJADE (DEFERASIORX) [Concomitant]
  6. FLUOCINOLONE ACETONIDE) [Concomitant]
  7. FOLIC ACID [Concomitant]
  8. HYDROCHLOROTHIAZIDE [Concomitant]
  9. HYDROCODONE-ACETAMINOPHEN (PROCET) [Concomitant]

REACTIONS (1)
  - Neutropenia [None]
